FAERS Safety Report 8428671-3 (Version None)
Quarter: 2012Q2

REPORT INFORMATION
  Report Type: 
  Country: None (occurrence: None)
  Receive Date: 20120606
  Receipt Date: 20120521
  Transmission Date: 20120825
  Serious: Yes (Hospitalization)
  Sender: FDA-Public Use
  Company Number: UTC-018609

PATIENT
  Age: 52 Year
  Sex: Female
  Weight: 65.3 kg

DRUGS (9)
  1. REMODULIN [Suspect]
     Indication: PULMONARY HYPERTENSION
     Dosage: 72 UG/KG (0.05 UG/KG, 1 IN 1 MIN), SUBCUTANEOUS
     Route: 058
     Dates: start: 20100709, end: 20120518
  2. REMODULIN [Suspect]
     Indication: PULMONARY HYPERTENSION
     Dosage: 72 UG/KG (0.05 UG/KG, 1 IN 1 MIN), SUBCUTANEOUS
     Route: 058
     Dates: start: 20120518
  3. COUMADIN [Concomitant]
  4. AMIODARONE HCL [Concomitant]
  5. DIGOXIN [Concomitant]
  6. OXYGEN (OXYGEN) [Concomitant]
  7. REVATIO [Concomitant]
  8. TRACLEER [Concomitant]
  9. DIURETICS (DIURETICS) [Concomitant]

REACTIONS (2)
  - INFUSION SITE PAIN [None]
  - INFUSION SITE INFECTION [None]
